FAERS Safety Report 6820152-3 (Version None)
Quarter: 2010Q3

REPORT INFORMATION
  Report Type: 
  Country: None (occurrence: None)
  Receive Date: 20100707
  Receipt Date: 20100702
  Transmission Date: 20110219
  Serious: Yes (Hospitalization)
  Sender: FDA-Public Use
  Company Number: IT-MERCK-1005ITA00009

PATIENT
  Age: 66 Year
  Sex: Male

DRUGS (8)
  1. INVANZ [Suspect]
     Indication: ABDOMINAL ABSCESS
     Route: 042
     Dates: start: 20100201, end: 20100223
  2. ENOXAPARIN SODIUM [Concomitant]
     Route: 058
     Dates: start: 20091209, end: 20100206
  3. FUROSEMIDE SODIUM [Concomitant]
     Route: 048
     Dates: start: 20091209, end: 20100206
  4. CANRENOATE POTASSIUM [Concomitant]
     Route: 048
     Dates: start: 20091209, end: 20100206
  5. PANCREATIN [Concomitant]
     Route: 048
     Dates: start: 20091209, end: 20100206
  6. MAGNESIUM PIDOLATE [Concomitant]
     Route: 048
     Dates: start: 20091209, end: 20100206
  7. CALCIUM CARBONATE [Concomitant]
     Route: 048
     Dates: start: 20091209, end: 20100206
  8. POTASSIUM CHLORIDE [Concomitant]
     Route: 048
     Dates: start: 20091209, end: 20100206

REACTIONS (3)
  - HEPATIC LESION [None]
  - HYPERPYREXIA [None]
  - JAUNDICE [None]
